FAERS Safety Report 16410436 (Version 1)
Quarter: 2019Q2

REPORT INFORMATION
  Report Type: Spontaneous
  Country: VI (occurrence: VI)
  Receive Date: 20190610
  Receipt Date: 20190610
  Transmission Date: 20190711
  Serious: No
  Sender: FDA-Public Use
  Company Number: VI-PFIZER INC-2019242184

PATIENT
  Age: 78 Year
  Sex: Female
  Weight: 82 kg

DRUGS (3)
  1. ZOLEDRONIC ACID ^NICHI IKO^ [Concomitant]
     Indication: BONE FORMATION DECREASED
     Dosage: UNK, MONTHLY
     Dates: start: 201903
  2. IBRANCE [Suspect]
     Active Substance: PALBOCICLIB
     Indication: BREAST CANCER METASTATIC
     Dosage: 125 MG, CYCLIC (ONE A DAY FOR 3 WEEKS AND 1 WEEK OFF)
     Dates: start: 201903
  3. LETROZOLE. [Concomitant]
     Active Substance: LETROZOLE
     Indication: METASTASIS
     Dosage: 2.5 MG, DAILY
     Dates: start: 201711

REACTIONS (3)
  - Blood glucose increased [Unknown]
  - Haemoglobin decreased [Unknown]
  - White blood cell count decreased [Unknown]

NARRATIVE: CASE EVENT DATE: 20190522
